FAERS Safety Report 14607544 (Version 1)
Quarter: 2018Q1

REPORT INFORMATION
  Report Type: Spontaneous
  Country: ES (occurrence: ES)
  Receive Date: 20180307
  Receipt Date: 20180307
  Transmission Date: 20180509
  Serious: Yes (Hospitalization)
  Sender: FDA-Public Use
  Company Number: PHHY2018ES037487

PATIENT
  Age: 40 Year
  Sex: Female

DRUGS (4)
  1. FUROSEMID HEXAL [Suspect]
     Active Substance: FUROSEMIDE
     Indication: PRODUCT USED FOR UNKNOWN INDICATION
     Dosage: 40 MG, QD
     Route: 048
     Dates: start: 20150101
  2. ALDACTONE [Suspect]
     Active Substance: SPIRONOLACTONE
     Indication: PRODUCT USED FOR UNKNOWN INDICATION
     Dosage: 3 DF, QD
     Route: 048
     Dates: start: 20150101
  3. IBUPROFENO [Suspect]
     Active Substance: IBUPROFEN
     Indication: DENTAL CARE
     Dosage: 1800 MG, QD
     Route: 048
     Dates: start: 20160821, end: 20160826
  4. AUGMENTINE [Suspect]
     Active Substance: AMOXICILLIN\CLAVULANATE POTASSIUM
     Indication: DENTAL CARE
     Dosage: AMOXICILLIN TRIHYDRATE (500 MG) / CLAVULANATE POTASSIUM (125MG) 3 DF, QD
     Route: 048
     Dates: start: 20160821, end: 20160826

REACTIONS (1)
  - Acute kidney injury [Recovered/Resolved]

NARRATIVE: CASE EVENT DATE: 20160801
